FAERS Safety Report 6894807-9 (Version None)
Quarter: 2010Q3

REPORT INFORMATION
  Report Type: 
  Country: None (occurrence: None)
  Receive Date: 20100802
  Receipt Date: 20100722
  Transmission Date: 20110219
  Serious: Yes (Life-Threatening, Other)
  Sender: FDA-Public Use
  Company Number: GB-JNJFOC-20100707859

PATIENT
  Age: 60 Year
  Sex: Female

DRUGS (8)
  1. INFLIXIMAB, RECOMBINANT [Suspect]
     Indication: PSORIATIC ARTHROPATHY
     Route: 042
  2. AMITRIPTYLINE HYDROCHLORIDE [Concomitant]
     Route: 065
  3. CEPHALEXIN [Concomitant]
     Route: 065
  4. ETODOLAC [Concomitant]
     Route: 065
  5. EZETIMIBE [Concomitant]
     Route: 065
  6. FOLIC ACID [Concomitant]
     Route: 065
  7. METHOTREXATE [Concomitant]
     Route: 065
  8. ROSUVASTATIN [Concomitant]
     Route: 065

REACTIONS (1)
  - BREAST CANCER [None]
